FAERS Safety Report 13483816 (Version 1)
Quarter: 2017Q2

REPORT INFORMATION
  Report Type: Spontaneous
  Country: US (occurrence: US)
  Receive Date: 20170425
  Receipt Date: 20170425
  Transmission Date: 20170830
  Serious: No
  Sender: FDA-Public Use
  Company Number: None

PATIENT
  Age: 46 Year
  Sex: Female
  Weight: 60.75 kg

DRUGS (4)
  1. TORADOL [Concomitant]
     Active Substance: KETOROLAC TROMETHAMINE
  2. PERCOCET [Concomitant]
     Active Substance: ACETAMINOPHEN\OXYCODONE HYDROCHLORIDE
  3. OXYCODONE -ACETAMINOPHEN 5-325 [Suspect]
     Active Substance: ACETAMINOPHEN\OXYCODONE HYDROCHLORIDE
     Indication: ANALGESIC THERAPY
     Dosage: ?          QUANTITY:40 TABLET(S);?
     Route: 048
     Dates: start: 20170421, end: 20170422
  4. CEFADROXIL. [Concomitant]
     Active Substance: CEFADROXIL

REACTIONS (4)
  - Drug ineffective [None]
  - Nausea [None]
  - Product substitution issue [None]
  - Pain [None]

NARRATIVE: CASE EVENT DATE: 20170421
